FAERS Safety Report 8317811 (Version 2)
Quarter: 2013Q2

REPORT INFORMATION
  Report Type: Report from Study
  Country: DE (occurrence: DE)
  Receive Date: 20120102
  Receipt Date: 20130508
  Transmission Date: 20140414
  Serious: Yes (Hospitalization)
  Sender: FDA-Public Use
  Company Number: DE-ROCHE-1023742

PATIENT
  Age: 46 Year
  Sex: Female
  Weight: 100 kg

DRUGS (6)
  1. BEVACIZUMAB [Suspect]
     Indication: BREAST CANCER
     Dosage: LAST DOSE PRIOR TO EVENTS:28/NOV/2011
     Route: 042
     Dates: start: 20111128, end: 20111219
  2. BEVACIZUMAB [Suspect]
     Route: 042
     Dates: start: 20111227
  3. PACLITAXEL [Suspect]
     Indication: BREAST CANCER
     Dosage: LAST DOSE PRIOR TO EVENTS:12/DEC/2011
     Route: 042
     Dates: start: 20111128, end: 20111219
  4. PACLITAXEL [Suspect]
     Route: 042
     Dates: start: 20111227
  5. DOXORUBICIN [Suspect]
     Indication: BREAST CANCER
     Dosage: LAST DOSE PRIOR TO EVENTS:12/DEC/2011
     Route: 042
     Dates: start: 20111128, end: 20111219
  6. DOXORUBICIN [Suspect]
     Route: 042
     Dates: start: 20111227

REACTIONS (4)
  - General physical health deterioration [Recovered/Resolved]
  - Pyrexia [Recovered/Resolved]
  - Leukopenia [Recovered/Resolved]
  - Chills [Recovered/Resolved]
